FAERS Safety Report 16503668 (Version 1)
Quarter: 2019Q3

REPORT INFORMATION
  Report Type: Spontaneous
  Country: GR (occurrence: GR)
  Receive Date: 20190701
  Receipt Date: 20190701
  Transmission Date: 20191004
  Serious: Yes (Hospitalization)
  Sender: FDA-Public Use
  Company Number: PHHY2019GR149657

PATIENT
  Age: 15 Month
  Sex: Female

DRUGS (1)
  1. AMOXICILLIN + CLAVULANATE POTASSIUM [Suspect]
     Active Substance: AMOXICILLIN\CLAVULANATE POTASSIUM
     Indication: OTITIS MEDIA ACUTE
     Route: 065

REACTIONS (6)
  - Leukocytosis [Unknown]
  - Rash [Recovered/Resolved]
  - Rash macular [Recovered/Resolved]
  - Skin discolouration [Recovered/Resolved]
  - Urticarial vasculitis [Recovered/Resolved]
  - Blister [Recovered/Resolved]
